FAERS Safety Report 4868371-X (Version None)
Quarter: 2005Q4

REPORT INFORMATION
  Report Type: 
  Country: None (occurrence: None)
  Receive Date: 20051229
  Receipt Date: 20051118
  Transmission Date: 20060501
  Serious: Yes (Hospitalization)
  Sender: FDA-Public Use
  Company Number: US-GLAXOSMITHKLINE-A0582880A

PATIENT
  Age: 59 Year
  Sex: Female
  Weight: 68.6 kg

DRUGS (8)
  1. VALTREX [Suspect]
     Dosage: 500MG PER DAY
     Route: 048
     Dates: start: 20050101, end: 20051111
  2. LISINOPRIL [Concomitant]
  3. ASPIRIN [Concomitant]
     Route: 048
  4. CAL MAG [Concomitant]
     Route: 048
  5. VITAMIN B-12 [Concomitant]
  6. FLAX SEED [Concomitant]
     Route: 048
  7. CALCIUM GLUCONATE [Concomitant]
  8. PREDNISONE 50MG TAB [Concomitant]
     Route: 048

REACTIONS (5)
  - ABASIA [None]
  - ASTHENIA [None]
  - GAIT DISTURBANCE [None]
  - NEUROPATHY [None]
  - PERONEAL NERVE PALSY [None]
